FAERS Safety Report 10927541 (Version 1)
Quarter: 2015Q1

REPORT INFORMATION
  Report Type: Spontaneous
  Country: CN (occurrence: CN)
  Receive Date: 20150318
  Receipt Date: 20150318
  Transmission Date: 20150721
  Serious: Yes (Other)
  Sender: FDA-Public Use
  Company Number: CN-BAXTER-2015BAX013898

PATIENT
  Age: 65 Year
  Sex: Male
  Weight: 75 kg

DRUGS (14)
  1. ACETYLCYSTEINE. [Concomitant]
     Active Substance: ACETYLCYSTEINE
     Indication: POSTOPERATIVE CARE
     Route: 065
     Dates: end: 20140530
  2. CEFOTIAM HYDROCHLORIDE [Concomitant]
     Active Substance: CEFOTIAM HYDROCHLORIDE
     Indication: POSTOPERATIVE CARE
     Route: 065
     Dates: end: 20140529
  3. RECOMBINANT HUMAN INSULIN [Concomitant]
     Indication: POSTOPERATIVE CARE
     Route: 065
     Dates: end: 20140603
  4. LANSOPRAZOLE. [Concomitant]
     Active Substance: LANSOPRAZOLE
     Indication: POSTOPERATIVE CARE
     Route: 065
     Dates: end: 20140530
  5. ADENOSINE DISODIUM TRIPHOSPHATE AND MAGNESIUM CHLORIDE [Concomitant]
     Indication: POSTOPERATIVE CARE
     Route: 065
     Dates: end: 20140530
  6. ISOPROTERENOL HYDROCHLORIDE INJECTION [Concomitant]
     Indication: PREMEDICATION
     Route: 030
     Dates: start: 20140529
  7. BUMINATE 5% [Suspect]
     Active Substance: ALBUMIN (HUMAN)
     Indication: SUPPORTIVE CARE
     Route: 041
     Dates: start: 20140527, end: 20140527
  8. AMBROXOL HYDROCHLORIDE [Concomitant]
     Active Substance: AMBROXOL HYDROCHLORIDE
     Indication: POSTOPERATIVE CARE
     Route: 065
     Dates: end: 20140530
  9. REDUCED GLUTATHIONE [Concomitant]
     Indication: POSTOPERATIVE CARE
     Route: 065
     Dates: end: 20140603
  10. BUMINATE 5% [Suspect]
     Active Substance: ALBUMIN (HUMAN)
     Route: 041
     Dates: start: 20140529, end: 20140529
  11. DEXAMETHASONE SODIUM PHOSPHATE INJECTION [Suspect]
     Active Substance: DEXAMETHASONE SODIUM PHOSPHATE
     Indication: SUPPORTIVE CARE
     Route: 040
     Dates: start: 20140529
  12. GIK [Concomitant]
     Indication: POSTOPERATIVE CARE
     Route: 065
     Dates: end: 20140530
  13. ALANYL GLUTAMINE [Concomitant]
     Active Substance: ALANYL GLUTAMINE
     Indication: POSTOPERATIVE CARE
     Route: 065
     Dates: end: 20140530
  14. ALPROSTADIL. [Concomitant]
     Active Substance: ALPROSTADIL
     Indication: POSTOPERATIVE CARE
     Route: 065
     Dates: end: 20140602

REACTIONS (8)
  - Pruritus [Recovered/Resolved]
  - Heart rate increased [None]
  - Rash erythematous [Recovered/Resolved]
  - Hypertension [Recovered/Resolved]
  - Wheezing [Recovering/Resolving]
  - Chest discomfort [Recovered/Resolved]
  - Dyspnoea [Recovered/Resolved]
  - Hyperhidrosis [Recovered/Resolved]

NARRATIVE: CASE EVENT DATE: 20140527
